FAERS Safety Report 24629885 (Version 2)
Quarter: 2024Q4

REPORT INFORMATION
  Report Type: Spontaneous
  Country: US (occurrence: US)
  Receive Date: 20241118
  Receipt Date: 20241129
  Transmission Date: 20250115
  Serious: Yes (Hospitalization)
  Sender: TEVA
  Company Number: US-TEVA-VS-3265098

PATIENT
  Age: 26 Month
  Sex: Female

DRUGS (3)
  1. METHYLPREDNISOLONE [Suspect]
     Active Substance: METHYLPREDNISOLONE
     Indication: Interstitial lung disease
     Route: 050
  2. METHYLPREDNISOLONE [Suspect]
     Active Substance: METHYLPREDNISOLONE
     Indication: Interstitial lung disease
     Route: 050
  3. ALBUTEROL [Concomitant]
     Active Substance: ALBUTEROL
     Indication: Wheezing
     Route: 065

REACTIONS (7)
  - Hypoxia [Recovering/Resolving]
  - Type I hypersensitivity [Recovering/Resolving]
  - Oral pain [Recovering/Resolving]
  - Cyanosis [Recovering/Resolving]
  - Lethargy [Recovering/Resolving]
  - Hypertension [Recovering/Resolving]
  - Respiratory distress [Recovering/Resolving]
